FAERS Safety Report 6630750-8 (Version None)
Quarter: 2010Q1

REPORT INFORMATION
  Report Type: 
  Country: None (occurrence: None)
  Receive Date: 20100311
  Receipt Date: 20100301
  Transmission Date: 20100710
  Serious: Yes (Other)
  Sender: FDA-Public Use
  Company Number: CN-TYCO HEALTHCARE/MALLINCKRODT-T201000622

PATIENT
  Sex: Female

DRUGS (6)
  1. SODIUM IODIDE I 131 [Suspect]
     Indication: HYPERTHYROIDISM
     Dosage: 1.25 MCI, SINGLE
     Route: 048
     Dates: start: 19550726, end: 19550726
  2. SODIUM IODIDE I 131 [Suspect]
     Dosage: 2.0 MCI, SINGLE
     Route: 048
     Dates: start: 19560229, end: 19560229
  3. PHENOBARBITAL [Concomitant]
     Dosage: 32 MG, TID
     Dates: start: 19550726
  4. PROPYLTHIOURACIL [Concomitant]
     Indication: HYPERTHYROIDISM
     Dosage: 50 MG, TID
     Dates: start: 19571201
  5. LUGOL CAP [Concomitant]
     Indication: HYPERTHYROIDISM
     Dosage: UNK
     Dates: end: 19550701
  6. LUGOL CAP [Concomitant]
     Dosage: 10 MINIMS BID
     Dates: start: 19571201

REACTIONS (2)
  - DISEASE PROGRESSION [None]
  - THYROID CANCER [None]
